FAERS Safety Report 20166811 (Version 3)
Quarter: 2021Q4

REPORT INFORMATION
  Report Type: Spontaneous
  Country: US (occurrence: US)
  Receive Date: 20211209
  Receipt Date: 20211221
  Transmission Date: 20220303
  Serious: Yes (Other)
  Sender: FDA-Public Use
  Company Number: US-PFIZER INC-202101417125

PATIENT
  Age: 63 Year
  Sex: Female

DRUGS (2)
  1. DETROL LA [Suspect]
     Active Substance: TOLTERODINE TARTRATE
     Dosage: UNK, DAILY
  2. DETROL LA [Suspect]
     Active Substance: TOLTERODINE TARTRATE
     Dosage: UNK, ALTERNATE DAY (EVERY OTHER DAY)

REACTIONS (6)
  - Rheumatoid arthritis [Unknown]
  - Vulval cancer [Unknown]
  - Fibromyalgia [Unknown]
  - Memory impairment [Unknown]
  - Feeling abnormal [Unknown]
  - Intentional product misuse [Unknown]
